FAERS Safety Report 5395726-X (Version None)
Quarter: 2007Q3

REPORT INFORMATION
  Report Type: 
  Country: None (occurrence: None)
  Receive Date: 20070724
  Receipt Date: 20070713
  Transmission Date: 20080115
  Serious: Yes (Hospitalization)
  Sender: FDA-Public Use
  Company Number: JP-MERCK-0707USA03441

PATIENT
  Age: 69 Year
  Sex: Male

DRUGS (6)
  1. PEPCID RPD [Suspect]
     Route: 048
  2. MICARDIS [Suspect]
     Route: 048
     Dates: start: 20070529, end: 20070712
  3. NORVASC [Concomitant]
     Route: 048
  4. ASPIRIN [Concomitant]
     Route: 048
  5. LASIX [Concomitant]
     Route: 048
  6. WARFARIN [Concomitant]
     Route: 048

REACTIONS (1)
  - LIVER DISORDER [None]
